FAERS Safety Report 4797418-4 (Version None)
Quarter: 2005Q4

REPORT INFORMATION
  Report Type: 
  Country: None (occurrence: None)
  Receive Date: 20051013
  Receipt Date: 20051004
  Transmission Date: 20060501
  Serious: Yes (Death)
  Sender: FDA-Public Use
  Company Number: US-BRISTOL-MYERS SQUIBB COMPANY-13136932

PATIENT
  Age: 60 Year

DRUGS (3)
  1. PRAVASTATIN SODIUM [Suspect]
     Route: 048
  2. VERAPAMIL [Suspect]
     Route: 048
  3. MIRTAZAPINE [Suspect]
     Route: 048

REACTIONS (2)
  - COMPLETED SUICIDE [None]
  - INTENTIONAL DRUG MISUSE [None]
